FAERS Safety Report 7636708-4 (Version None)
Quarter: 2011Q3

REPORT INFORMATION
  Report Type: 
  Country: None (occurrence: None)
  Receive Date: 20110726
  Receipt Date: 20110715
  Transmission Date: 20111222
  Serious: Yes (Hospitalization)
  Sender: FDA-Public Use
  Company Number: FR-SANOFI-AVENTIS-2011SA045186

PATIENT
  Age: 81 Year
  Sex: Male

DRUGS (3)
  1. PREVISCAN [Suspect]
     Dates: end: 20110531
  2. PLAVIX [Suspect]
     Route: 048
     Dates: end: 20110531
  3. CIPROFLOXACIN [Suspect]
     Indication: URINARY TRACT INFECTION
     Route: 048
     Dates: start: 20110501

REACTIONS (3)
  - MELAENA [None]
  - INTERNATIONAL NORMALISED RATIO INCREASED [None]
  - ANAEMIA [None]
